FAERS Safety Report 7488177-5 (Version None)
Quarter: 2011Q2

REPORT INFORMATION
  Report Type: 
  Country: None (occurrence: None)
  Receive Date: 20110511
  Receipt Date: 20110427
  Transmission Date: 20111010
  Serious: Yes (Other)
  Sender: FDA-Public Use
  Company Number: 031932

PATIENT
  Age: 63 Year
  Sex: Female

DRUGS (5)
  1. LAMISIL /00992601/ [Concomitant]
  2. CIMZIA [Suspect]
     Indication: RHEUMATOID ARTHRITIS
     Dosage: SUBCUTANEOUS
     Route: 058
     Dates: start: 20110208
  3. LEUCOVORIN CALCIUM [Concomitant]
  4. METHOTREXARE [Concomitant]
  5. CALCIUM CARBONATE  W/VITAMIN D /00944201/ [Concomitant]

REACTIONS (2)
  - DERMATITIS ALLERGIC [None]
  - URTICARIA [None]
